FAERS Safety Report 8356607-2 (Version None)
Quarter: 2012Q2

REPORT INFORMATION
  Report Type: 
  Country: None (occurrence: None)
  Receive Date: 20120514
  Receipt Date: 20120509
  Transmission Date: 20120825
  Serious: Yes (Death, Other)
  Sender: FDA-Public Use
  Company Number: PHHY2012BR040097

PATIENT
  Sex: Female

DRUGS (2)
  1. SPIRIVA [Concomitant]
     Indication: DYSPNOEA
  2. ZOLEDRONOC ACID [Suspect]
     Dosage: 5 MG/100 ML
     Route: 042

REACTIONS (4)
  - OSTEOPOROSIS [None]
  - WHEEZING [None]
  - CHOLECYSTITIS ACUTE [None]
  - NAUSEA [None]
